FAERS Safety Report 9179567 (Version 2)
Quarter: 2013Q3

REPORT INFORMATION
  Report Type: Report from Study
  Country: CA (occurrence: CA)
  Receive Date: 20121029
  Receipt Date: 20130708
  Transmission Date: 20140515
  Serious: Yes (Hospitalization)
  Sender: FDA-Public Use
  Company Number: PHHY2012CA088335

PATIENT
  Sex: Female

DRUGS (10)
  1. ACLASTA [Suspect]
     Indication: OSTEOPOROSIS
     Dosage: UNK
     Route: 042
     Dates: start: 20121001
  2. PREVACID [Concomitant]
  3. SINGULAIR [Concomitant]
  4. COVEROL [Concomitant]
  5. MESACOL [Concomitant]
  6. RANITIDINE [Concomitant]
  7. MEDROL [Concomitant]
  8. ACTONEL [Concomitant]
  9. AZATHIOPRINE [Concomitant]
     Dosage: 75 MG, QD
  10. IMODIUM [Concomitant]
     Dosage: 1 DF, DAILY

REACTIONS (8)
  - Gait disturbance [Recovered/Resolved]
  - Feeling cold [Recovered/Resolved]
  - Mobility decreased [Recovered/Resolved]
  - Tremor [Recovered/Resolved]
  - Nausea [Recovered/Resolved]
  - Asthenia [Recovered/Resolved]
  - Dehydration [Recovered/Resolved]
  - Malaise [Unknown]
